FAERS Safety Report 14845802 (Version 1)
Quarter: 2018Q2

REPORT INFORMATION
  Report Type: Spontaneous
  Country: GB (occurrence: GB)
  Receive Date: 20180504
  Receipt Date: 20180504
  Transmission Date: 20180711
  Serious: Yes (Other)
  Sender: FDA-Public Use
  Company Number: GB-BAUSCH-BL-2018-012976

PATIENT
  Age: 87 Year
  Sex: Female

DRUGS (1)
  1. PREDNISOLONE. [Suspect]
     Active Substance: PREDNISOLONE
     Indication: FACIAL PARALYSIS
     Route: 065

REACTIONS (5)
  - Hypomania [Unknown]
  - Impulsive behaviour [Unknown]
  - Confusional state [Unknown]
  - Euphoric mood [Unknown]
  - Drug prescribing error [Unknown]
